FAERS Safety Report 11114365 (Version 1)
Quarter: 2015Q2

REPORT INFORMATION
  Report Type: Spontaneous
  Country: US (occurrence: US)
  Receive Date: 20150514
  Receipt Date: 20150514
  Transmission Date: 20150821
  Serious: Yes (Hospitalization)
  Sender: FDA-Public Use
  Company Number: US-B.I. PHARMACEUTICALS,INC./RIDGEFIELD-2015-BI-25055BP

PATIENT
  Age: 83 Year
  Sex: Male
  Weight: 113 kg

DRUGS (2)
  1. SPIRIVA [Suspect]
     Active Substance: TIOTROPIUM BROMIDE MONOHYDRATE
     Dosage: 18 MCG
     Route: 048
     Dates: start: 20150508, end: 20150508
  2. SPIRIVA [Suspect]
     Active Substance: TIOTROPIUM BROMIDE MONOHYDRATE
     Indication: ASBESTOSIS
     Dosage: 18 MCG
     Route: 055
     Dates: start: 2005

REACTIONS (6)
  - Fall [Recovered/Resolved]
  - Rib fracture [Recovered/Resolved]
  - Off label use [Unknown]
  - Cardiac valve disease [Recovered/Resolved]
  - Incorrect route of drug administration [Recovered/Resolved]
  - Cerebrovascular accident [Recovered/Resolved with Sequelae]

NARRATIVE: CASE EVENT DATE: 2005
